FAERS Safety Report 24421680 (Version 1)
Quarter: 2024Q4

REPORT INFORMATION
  Report Type: Report from Study
  Country: PK (occurrence: PK)
  Receive Date: 20241010
  Receipt Date: 20241010
  Transmission Date: 20250115
  Serious: Yes (Other)
  Sender: ROCHE
  Company Number: PK-ROCHE-10000100234

PATIENT
  Age: 39 Year
  Sex: Female

DRUGS (2)
  1. RITUXIMAB [Suspect]
     Active Substance: RITUXIMAB
     Indication: Granulomatosis with polyangiitis
     Route: 042
     Dates: start: 20241001
  2. DEXAMETHASONE [Concomitant]
     Active Substance: DEXAMETHASONE
     Dosage: 30 MIN BEFORE RITUXIMAB
     Route: 042

REACTIONS (1)
  - Pemphigus [Unknown]

NARRATIVE: CASE EVENT DATE: 20241001
